FAERS Safety Report 11129864 (Version 3)
Quarter: 2015Q3

REPORT INFORMATION
  Report Type: Report from Study
  Country: US (occurrence: US)
  Receive Date: 20150521
  Receipt Date: 20150724
  Transmission Date: 20151125
  Serious: Yes (Hospitalization)
  Sender: FDA-Public Use
  Company Number: US-ACTELION-A-US2015-118121

PATIENT
  Age: 78 Year
  Sex: Male

DRUGS (2)
  1. TRACLEER [Suspect]
     Active Substance: BOSENTAN
     Indication: PULMONARY ARTERIAL HYPERTENSION
     Dosage: UNK
     Route: 048
  2. SILDENAFIL. [Concomitant]
     Active Substance: SILDENAFIL

REACTIONS (9)
  - Hip surgery [Unknown]
  - Ulcer haemorrhage [Unknown]
  - Myocardial infarction [Unknown]
  - Hip fracture [Unknown]
  - Pneumonia [Unknown]
  - Fatigue [Unknown]
  - Somnolence [Unknown]
  - Fall [Unknown]
  - Dysphagia [Unknown]
